FAERS Safety Report 6382486-9 (Version None)
Quarter: 2009Q3

REPORT INFORMATION
  Report Type: 
  Country: None (occurrence: None)
  Receive Date: 20090930
  Receipt Date: 20090818
  Transmission Date: 20100115
  Serious: Yes (Other)
  Sender: FDA-Public Use
  Company Number: ES-ELI_LILLY_AND_COMPANY-ES200907001441

PATIENT
  Sex: Male
  Weight: 113 kg

DRUGS (8)
  1. BYETTA [Suspect]
     Indication: DIABETES MELLITUS
     Dosage: 5 UG, 2/D BREAKFAST AND DINNER
     Route: 058
     Dates: start: 20090625, end: 20090702
  2. METFORMIN HCL [Concomitant]
     Dosage: 850,  EACH 12 HOURS, 1-0-1
     Route: 065
  3. GEMFIBROZILO [Concomitant]
     Dosage: 900 MG, DAILY (1/D), 0-0-1
     Route: 065
  4. LEVOTIROXINA [Concomitant]
     Dosage: 125 MG, DAILY (1/D)
     Route: 065
  5. INSULIN [Concomitant]
     Dosage: UNK, UNKNOWN
     Route: 065
     Dates: start: 20090706
  6. APROVEL [Concomitant]
     Dosage: 150 1-0-0
     Route: 050
  7. JANUVIA [Concomitant]
     Dosage: 100 , UNK
     Route: 065
  8. EUTIROX [Concomitant]
     Dosage: UNK, 20 MINUTES BEFORE HAVING BREAKFAST 1-0-0
     Route: 065

REACTIONS (9)
  - EYELID OEDEMA [None]
  - FACE OEDEMA [None]
  - HEPATOMEGALY [None]
  - HYPOGLYCAEMIA [None]
  - OEDEMA PERIPHERAL [None]
  - PANCREATITIS ACUTE [None]
  - PORTAL HYPERTENSION [None]
  - RENAL MASS [None]
  - WEIGHT DECREASED [None]
